FAERS Safety Report 12857523 (Version 2)
Quarter: 2016Q4

REPORT INFORMATION
  Report Type: Spontaneous
  Country: GB (occurrence: GB)
  Receive Date: 20161018
  Receipt Date: 20161019
  Transmission Date: 20170207
  Serious: Yes (Other)
  Sender: FDA-Public Use
  Company Number: GB-DSJP-DSU-2016-134889

PATIENT

DRUGS (1)
  1. CHOLESTAGEL [Suspect]
     Active Substance: COLESEVELAM HYDROCHLORIDE
     Indication: PRODUCT USED FOR UNKNOWN INDICATION
     Dosage: UNK
     Dates: end: 201604

REACTIONS (3)
  - Intestinal haemorrhage [Unknown]
  - Gastrointestinal ulcer [Unknown]
  - Gastrointestinal pain [Recovered/Resolved]
